FAERS Safety Report 19487540 (Version 7)
Quarter: 2025Q3

REPORT INFORMATION
  Report Type: Spontaneous
  Country: EU (occurrence: EU)
  Receive Date: 20210702
  Receipt Date: 20250812
  Transmission Date: 20251021
  Serious: Yes (Other)
  Sender: NOVARTIS
  Company Number: NVSC2021IT148157

PATIENT
  Age: 59 Year
  Sex: Female

DRUGS (2)
  1. IMATINIB MESYLATE [Suspect]
     Active Substance: IMATINIB MESYLATE
     Indication: Chronic myeloid leukaemia
     Dosage: 400 MG, QD ONCE A DAY(400 MG, PER DAY )
     Route: 065
  2. IMATINIB MESYLATE [Suspect]
     Active Substance: IMATINIB MESYLATE
     Dosage: 40 MG, QD ONCE A DAY(400 MG, PER DAY )
     Route: 065

REACTIONS (12)
  - Pyoderma gangrenosum [Recovered/Resolved]
  - Pain [Recovered/Resolved]
  - Inflammation [Recovered/Resolved]
  - Neutrophilia [Recovered/Resolved]
  - Leukocytosis [Recovered/Resolved]
  - Skin ulcer [Recovered/Resolved]
  - Wound [Recovered/Resolved]
  - Genital discharge [Recovered/Resolved]
  - Tissue injury [Recovered/Resolved]
  - Acute phase reaction [Recovered/Resolved]
  - Anaemia [Recovered/Resolved]
  - Erythema [Recovered/Resolved]
